FAERS Safety Report 4533609-5 (Version None)
Quarter: 2004Q4

REPORT INFORMATION
  Report Type: 
  Country: None (occurrence: None)
  Receive Date: 20041221
  Receipt Date: 20041129
  Transmission Date: 20050328
  Serious: Yes (Hospitalization, Other)
  Sender: FDA-Public Use
  Company Number: PHNR2004AU01696

PATIENT
  Age: 20 Year
  Sex: Female

DRUGS (12)
  1. SANDIMMUNE [Suspect]
     Indication: COLITIS ULCERATIVE
     Dosage: 110 MG IV OVER 24 HOURS
     Route: 042
     Dates: start: 20041015, end: 20041023
  2. DILANTIN [Suspect]
     Indication: CONVULSION
     Dates: start: 20041001, end: 20041001
  3. ATENOLOL [Concomitant]
     Dosage: 50 MG, BID
  4. SALOFALK [Concomitant]
  5. SLOW-K [Concomitant]
     Dosage: 3 TABLETS TDS
  6. XYLOCAINE [Concomitant]
     Dosage: VISCOUS APPLIED TO TONGUE TWICE DAILY
  7. CALTRATE [Concomitant]
     Dosage: 2 TABLETS BID
  8. GTN [Concomitant]
     Route: 062
     Dates: start: 20041022
  9. OSTELIN [Concomitant]
     Dosage: 1000 UNITS DAILY
  10. IMURAN [Concomitant]
     Dosage: 100 MG PER DAY
  11. ACETAMINOPHEN [Concomitant]
     Dosage: 1 G, QID
  12. METRONIDAZOLE [Concomitant]
     Dosage: 400 MG, TID FOR 7 DAYS

REACTIONS (4)
  - CONVULSION [None]
  - DRUG HYPERSENSITIVITY [None]
  - PYREXIA [None]
  - RASH GENERALISED [None]
